FAERS Safety Report 10930753 (Version 1)
Quarter: 2015Q1

REPORT INFORMATION
  Report Type: Spontaneous
  Country: US (occurrence: US)
  Receive Date: 20150319
  Receipt Date: 20150319
  Transmission Date: 20150721
  Serious: No
  Sender: FDA-Public Use
  Company Number: US-ENDO PHARMACEUTICALS INC.-CLON20140017

PATIENT
  Sex: Female

DRUGS (1)
  1. CLONIDINE HCL TABLETS 0.1MG [Suspect]
     Active Substance: CLONIDINE HYDROCHLORIDE
     Indication: PRODUCT USED FOR UNKNOWN INDICATION
     Dosage: 0.1MG
     Route: 065

REACTIONS (2)
  - Drug ineffective [Unknown]
  - Blood pressure increased [Unknown]

NARRATIVE: CASE EVENT DATE: 201409
